FAERS Safety Report 11080642 (Version 1)
Quarter: 2015Q2

REPORT INFORMATION
  Report Type: Spontaneous
  Country: US (occurrence: None)
  Receive Date: 20150430
  Receipt Date: 20150430
  Transmission Date: 20150821
  Serious: Yes (Hospitalization)
  Sender: FDA-Public Use
  Company Number: None

PATIENT
  Sex: Female

DRUGS (1)
  1. GADAVIST [Suspect]
     Active Substance: GADOBUTROL
     Indication: NUCLEAR MAGNETIC RESONANCE IMAGING
     Dosage: 7CC ONCE WIH MRI

REACTIONS (4)
  - Agitation [None]
  - Arrhythmia [None]
  - Contrast media reaction [None]
  - Tachycardia [None]

NARRATIVE: CASE EVENT DATE: 20150424
